FAERS Safety Report 11194039 (Version 2)
Quarter: 2016Q4

REPORT INFORMATION
  Report Type: Spontaneous
  Country: US (occurrence: US)
  Receive Date: 20150616
  Receipt Date: 20161018
  Transmission Date: 20170206
  Serious: No
  Sender: FDA-Public Use
  Company Number: US-ELI_LILLY_AND_COMPANY-US201505007026

PATIENT
  Age: 34 Year
  Sex: Male
  Weight: 82 kg

DRUGS (1)
  1. CIALIS [Suspect]
     Active Substance: TADALAFIL
     Indication: PRODUCT USED FOR UNKNOWN INDICATION
     Dosage: 100 MG, UNKNOWN
     Route: 048
     Dates: start: 20150517

REACTIONS (4)
  - Testicular pain [Not Recovered/Not Resolved]
  - Overdose [Unknown]
  - Erection increased [Not Recovered/Not Resolved]
  - Painful erection [Not Recovered/Not Resolved]

NARRATIVE: CASE EVENT DATE: 20150517
